FAERS Safety Report 4608779-0 (Version None)
Quarter: 2005Q1

REPORT INFORMATION
  Report Type: 
  Country: None (occurrence: None)
  Receive Date: 20050315
  Receipt Date: 20050309
  Transmission Date: 20050727
  Serious: Yes (Hospitalization)
  Sender: FDA-Public Use
  Company Number: US-JNJFOC-20050302990

PATIENT
  Sex: Female
  Weight: 49.9 kg

DRUGS (1)
  1. DURAGESIC-100 [Suspect]
     Route: 062

REACTIONS (7)
  - CHRONIC TONSILLITIS [None]
  - COCCIDIOIDOMYCOSIS [None]
  - OVARIAN CYST [None]
  - RAYNAUD'S PHENOMENON [None]
  - RIFT VALLEY FEVER [None]
  - SWELLING [None]
  - SYSTEMIC LUPUS ERYTHEMATOSUS [None]
